FAERS Safety Report 8102421-2 (Version None)
Quarter: 2012Q1

REPORT INFORMATION
  Report Type: 
  Country: None (occurrence: None)
  Receive Date: 20120201
  Receipt Date: 20120123
  Transmission Date: 20120608
  Serious: Yes (Death)
  Sender: FDA-Public Use
  Company Number: US-CELGENEUS-163-21880-12011400

PATIENT
  Sex: Female

DRUGS (12)
  1. LOTEMAX [Concomitant]
     Route: 065
  2. REVLIMID [Suspect]
     Indication: MULTIPLE MYELOMA
     Dosage: 20 MILLIGRAM
     Route: 048
     Dates: start: 20101226, end: 20110609
  3. DEXAMETHASONE [Concomitant]
     Route: 065
  4. MAGNESIUM [Concomitant]
     Route: 065
  5. MULTI-VITAMINS [Concomitant]
     Route: 065
  6. DIGESTIVE ENZYMES [Concomitant]
     Route: 065
  7. SYNTHROID [Concomitant]
     Route: 065
  8. ASCORBIC ACID [Concomitant]
     Route: 065
  9. ACYCLOVIR [Concomitant]
     Route: 065
  10. ACETAMINOPHEN [Concomitant]
     Route: 065
  11. VITAMIN D [Concomitant]
     Route: 065
  12. IBUPROFEN (ADVIL) [Concomitant]
     Route: 065

REACTIONS (1)
  - PNEUMONIA [None]
